FAERS Safety Report 9484956 (Version 1)
Quarter: 2013Q3

REPORT INFORMATION
  Report Type: Spontaneous
  Country: US (occurrence: US)
  Receive Date: 20130828
  Receipt Date: 20130828
  Transmission Date: 20140515
  Serious: No
  Sender: FDA-Public Use
  Company Number: US-ABBOTT-13P-163-1121534-00

PATIENT
  Age: 41 Year
  Sex: Male
  Weight: 99.88 kg

DRUGS (1)
  1. ANDROGEL [Suspect]
     Indication: BLOOD TESTOSTERONE DECREASED
     Dosage: PUMP TOTAL: 88G; DAILY DOSE: 4 PUMPS PER DAY
     Dates: start: 201301

REACTIONS (2)
  - Product quality issue [Unknown]
  - Blood testosterone decreased [Not Recovered/Not Resolved]
